FAERS Safety Report 4874876-8 (Version None)
Quarter: 2006Q1

REPORT INFORMATION
  Report Type: 
  Country: None (occurrence: None)
  Receive Date: 20060105
  Receipt Date: 20051223
  Transmission Date: 20060701
  Serious: Yes (Other)
  Sender: FDA-Public Use
  Company Number: 2005055864

PATIENT
  Age: 52 Year
  Sex: Male
  Weight: 127.0072 kg

DRUGS (8)
  1. NEURONTIN [Suspect]
     Indication: NEURALGIA
     Dosage: 2300 MG (300 MG, 4 IN 1 D), ORAL
     Route: 048
     Dates: start: 20040701
  2. BEXTRA [Suspect]
     Indication: BONE PAIN
     Dosage: 20 MG (20 MG, AS NECESSARY), ORAL
     Route: 048
     Dates: start: 20041114
  3. ALL OTHER THERAPEUTIC PRODUCTS (ALL OTHER THERAPEUTIC PRODUCTS) [Concomitant]
     Indication: ILL-DEFINED DISORDER
  4. ALL OTHER THERAPEUTIC PRODUCTS (ALL OTHER THERAPEUTIC PRODUCTS) [Concomitant]
  5. DIOVAN ^CIBA-GEIGY^ (VALSARTAN) [Concomitant]
  6. AVANDIA [Concomitant]
  7. VYTORIN [Concomitant]
  8. XANAX [Concomitant]

REACTIONS (10)
  - BONE PAIN [None]
  - DRUG EFFECT DECREASED [None]
  - DRUG INEFFECTIVE [None]
  - FATIGUE [None]
  - INJECTION SITE PAIN [None]
  - JOINT DISLOCATION [None]
  - NEURALGIA [None]
  - PAIN IN EXTREMITY [None]
  - RADICULOPATHY [None]
  - SHOULDER PAIN [None]
